FAERS Safety Report 4410487-6 (Version None)
Quarter: 2004Q3

REPORT INFORMATION
  Report Type: 
  Country: None (occurrence: None)
  Receive Date: 20040726
  Receipt Date: 20040713
  Transmission Date: 20050211
  Serious: Yes (Life-Threatening, Hospitalization, Disabling, Other)
  Sender: FDA-Public Use
  Company Number: 2003112305

PATIENT
  Age: 62 Year
  Sex: Female

DRUGS (6)
  1. LIPITOR [Suspect]
     Indication: HYPERCHOLESTEROLAEMIA
     Dosage: ORAL
     Route: 048
     Dates: start: 20030401, end: 20030928
  2. ALLOPURINOL [Concomitant]
  3. ISOPHANE INSULIN [Concomitant]
  4. VASERETIC [Concomitant]
  5. CHOLESTEROL  - AND TRIGLYCERIDE REDUCERS (CHOLESTEROL AND TRIGLYCERIDE [Concomitant]
  6. CETIRIZINE HCL [Concomitant]

REACTIONS (14)
  - CARDIAC FAILURE [None]
  - DIFFICULTY IN WALKING [None]
  - HYPOMAGNESAEMIA [None]
  - HYPOTENSION [None]
  - MUSCLE ATROPHY [None]
  - NECROTISING FASCIITIS [None]
  - PCO2 ABNORMAL [None]
  - PNEUMONIA [None]
  - POST PROCEDURAL COMPLICATION [None]
  - RENAL FAILURE [None]
  - RHABDOMYOLYSIS [None]
  - SEPSIS [None]
  - SWELLING [None]
  - TETANY [None]
